FAERS Safety Report 12984186 (Version 2)
Quarter: 2016Q4

REPORT INFORMATION
  Report Type: Spontaneous
  Country: JP (occurrence: JP)
  Receive Date: 20161129
  Receipt Date: 20161210
  Transmission Date: 20170207
  Serious: Yes (Other)
  Sender: FDA-Public Use
  Company Number: JP-009507513-1611JPN012866

PATIENT
  Age: 85 Year
  Sex: Female

DRUGS (2)
  1. REBETOL [Suspect]
     Active Substance: RIBAVIRIN
     Dosage: UNK
     Route: 048
     Dates: start: 20160608
  2. SOVALDI [Suspect]
     Active Substance: SOFOSBUVIR
     Dosage: 1 DF, UNK
     Route: 048
     Dates: start: 20160608, end: 2016

REACTIONS (4)
  - Biliary tract operation [Unknown]
  - Platelet count decreased [Unknown]
  - Thymol turbidity test abnormal [Unknown]
  - Infection reactivation [Unknown]

NARRATIVE: CASE EVENT DATE: 2016
